FAERS Safety Report 13864318 (Version 1)
Quarter: 2017Q3

REPORT INFORMATION
  Report Type: Spontaneous
  Country: US (occurrence: None)
  Receive Date: 20170814
  Receipt Date: 20170814
  Transmission Date: 20171127
  Serious: No
  Sender: FDA-Public Use
  Company Number: None

PATIENT
  Age: 60 Year
  Sex: Female
  Weight: 108.86 kg

DRUGS (12)
  1. PRISTIQ EXTENDED-RELEASE [Suspect]
     Active Substance: DESVENLAFAXINE SUCCINATE
     Indication: ANXIETY
     Dosage: FREQUENCY - 1 IN MORNING
     Route: 048
  2. OMEPRAZOLE. [Concomitant]
     Active Substance: OMEPRAZOLE
  3. PANCREATIN [Concomitant]
     Active Substance: PANCRELIPASE
  4. CELECOXIB. [Concomitant]
     Active Substance: CELECOXIB
  5. XELJANZ [Concomitant]
     Active Substance: TOFACITINIB CITRATE
  6. ZYPREXA [Concomitant]
     Active Substance: OLANZAPINE
  7. MINOCYCLINE [Concomitant]
     Active Substance: MINOCYCLINE\MINOCYCLINE HYDROCHLORIDE
  8. RANITIDINE HCL [Concomitant]
     Active Substance: RANITIDINE HYDROCHLORIDE
  9. VITAMIN D3 [Concomitant]
     Active Substance: CHOLECALCIFEROL
  10. PRISTIQ EXTENDED-RELEASE [Suspect]
     Active Substance: DESVENLAFAXINE SUCCINATE
     Indication: DEPRESSION
     Dosage: FREQUENCY - 1 IN MORNING
     Route: 048
  11. HYDROCHLORTRHAZE [Concomitant]
  12. VITAMIN E [Concomitant]
     Active Substance: .ALPHA.-TOCOPHEROL

REACTIONS (8)
  - Mydriasis [None]
  - Blood pressure abnormal [None]
  - Anxiety [None]
  - Disturbance in attention [None]
  - Hot flush [None]
  - Hyperhidrosis [None]
  - Somnolence [None]
  - Heart rate increased [None]

NARRATIVE: CASE EVENT DATE: 20170701
